FAERS Safety Report 18007643 (Version 1)
Quarter: 2020Q3

REPORT INFORMATION
  Report Type: Spontaneous
  Country: IT (occurrence: IT)
  Receive Date: 20200710
  Receipt Date: 20200710
  Transmission Date: 20201103
  Serious: Yes (Other)
  Sender: FDA-Public Use
  Company Number: IT-MYLANLABS-2020M1061799

PATIENT
  Age: 44 Year
  Sex: Female

DRUGS (2)
  1. BOSENTAN. [Suspect]
     Active Substance: BOSENTAN
     Indication: PULMONARY HYPERTENSION
     Dosage: UNK
  2. BOSENTAN. [Suspect]
     Active Substance: BOSENTAN
     Indication: DRUG PROVOCATION TEST
     Dosage: 0.625 MG
     Route: 048

REACTIONS (15)
  - Eosinophilia [Recovered/Resolved]
  - Drug reaction with eosinophilia and systemic symptoms [Recovered/Resolved]
  - Hyperbilirubinaemia [Recovered/Resolved]
  - Pruritus [Recovered/Resolved]
  - Pyrexia [Recovered/Resolved]
  - Angioedema [Recovered/Resolved]
  - Blood creatinine increased [Recovered/Resolved]
  - Hypersensitivity [Recovered/Resolved]
  - Rash [Recovered/Resolved]
  - Renal colic [Recovered/Resolved]
  - Cough [Recovered/Resolved]
  - Rash maculo-papular [Recovered/Resolved]
  - Hepatic enzyme increased [Recovered/Resolved]
  - Erythema [Recovered/Resolved]
  - Lymphopenia [Recovered/Resolved]
